FAERS Safety Report 21495419 (Version 1)
Quarter: 2022Q4

REPORT INFORMATION
  Report Type: Spontaneous
  Country: US (occurrence: US)
  Receive Date: 20221022
  Receipt Date: 20221022
  Transmission Date: 20230112
  Serious: No
  Sender: FDA-Public Use
  Company Number: US-UNITED THERAPEUTICS-UNT-2022-021138

PATIENT
  Age: 57 Year
  Sex: Female

DRUGS (4)
  1. REMODULIN [Suspect]
     Active Substance: TREPROSTINIL
     Indication: Pulmonary arterial hypertension
     Dosage: UNK, CONTINUING
     Route: 041
     Dates: start: 201201
  2. REMODULIN [Suspect]
     Active Substance: TREPROSTINIL
     Dosage: 0.034 ?G/KG, CONTINUING
     Route: 041
  3. REMODULIN [Suspect]
     Active Substance: TREPROSTINIL
     Dosage: UNK, CONTINUING (INCREASED NEW GOAL DOSE)
     Route: 041
     Dates: start: 20220901
  4. REMODULIN [Suspect]
     Active Substance: TREPROSTINIL
     Dosage: 0.036 ?G/KG, CONTINUING
     Route: 041
     Dates: start: 2022

REACTIONS (7)
  - Headache [Recovering/Resolving]
  - Muscle spasms [Recovering/Resolving]
  - Therapy partial responder [Unknown]
  - Performance status decreased [Unknown]
  - Renal pain [Recovered/Resolved]
  - Fatigue [Recovered/Resolved]
  - Pain in jaw [Recovering/Resolving]

NARRATIVE: CASE EVENT DATE: 20120101
